FAERS Safety Report 18774330 (Version 1)
Quarter: 2021Q1

REPORT INFORMATION
  Report Type: Spontaneous
  Country: US (occurrence: US)
  Receive Date: 20210122
  Receipt Date: 20210122
  Transmission Date: 20210419
  Serious: No
  Sender: FDA-Public Use
  Company Number: None

PATIENT
  Age: 63 Year
  Sex: Female
  Weight: 60.75 kg

DRUGS (11)
  1. PACEMAKER [Concomitant]
     Active Substance: DEVICE
  2. VITAMIN D3 [Concomitant]
     Active Substance: CHOLECALCIFEROL
  3. METOPROLOL. [Concomitant]
     Active Substance: METOPROLOL
  4. XYZAL [Concomitant]
     Active Substance: LEVOCETIRIZINE DIHYDROCHLORIDE
  5. MULTI VITAMIN [Concomitant]
     Active Substance: VITAMINS
  6. PROLIA [Suspect]
     Active Substance: DENOSUMAB
     Indication: OSTEOPOROSIS
     Dosage: QUANTITY:1 INJECTION(S);OTHER FREQUENCY:ONCE EVERY 6 MONTH;OTHER ROUTE:SUBCUTANEOUS INJECTION?
     Dates: start: 20180420
  7. FISH OIL [Concomitant]
     Active Substance: FISH OIL
  8. VITAMIN B COMPLEX [Concomitant]
     Active Substance: CYANOCOBALAMIN\DEXPANTHENOL\NIACINAMIDE\PYRIDOXINE HYDROCHLORIDE\RIBOFLAVIN 5^-PHOSPHATE SODIUM\THIAMINE HYDROCHLORIDE\VITAMIN B COMPLEX
  9. ASPIRIN. [Concomitant]
     Active Substance: ASPIRIN
  10. PROBIOTICS [Concomitant]
     Active Substance: PROBIOTICS NOS
  11. TUMERIC [Concomitant]
     Active Substance: HERBALS\TURMERIC

REACTIONS (3)
  - Post procedural complication [None]
  - Arthralgia [None]
  - Pain in jaw [None]

NARRATIVE: CASE EVENT DATE: 20201102
